FAERS Safety Report 5139776-7 (Version None)
Quarter: 2006Q4

REPORT INFORMATION
  Report Type: 
  Country: None (occurrence: None)
  Receive Date: 20061024
  Receipt Date: 20061012
  Transmission Date: 20070319
  Serious: Yes (Other)
  Sender: FDA-Public Use
  Company Number: 14978

PATIENT
  Age: 7 Year
  Sex: Female

DRUGS (3)
  1. DAUNORUBICIN HCL [Suspect]
     Indication: ACUTE LYMPHOCYTIC LEUKAEMIA
  2. VINCRISTINE [Suspect]
     Indication: ACUTE LYMPHOCYTIC LEUKAEMIA
  3. ASPARAGINASE [Suspect]
     Indication: ACUTE LYMPHOCYTIC LEUKAEMIA

REACTIONS (8)
  - ABDOMINAL PAIN [None]
  - BACTERIAL SEPSIS [None]
  - CAECITIS [None]
  - FLATULENCE [None]
  - INTUSSUSCEPTION [None]
  - NAUSEA [None]
  - PYREXIA [None]
  - VOMITING [None]
